FAERS Safety Report 21578734 (Version 1)
Quarter: 2022Q4

REPORT INFORMATION
  Report Type: Spontaneous
  Country: FR (occurrence: FR)
  Receive Date: 20221110
  Receipt Date: 20221110
  Transmission Date: 20230113
  Serious: Yes (Hospitalization)
  Sender: FDA-Public Use
  Company Number: None

PATIENT
  Age: 28 Year
  Sex: Female

DRUGS (4)
  1. MIRTAZAPINE [Suspect]
     Active Substance: MIRTAZAPINE
     Indication: Product used for unknown indication
     Dosage: 2 DOSAGE FORMS DAILY; 2 TABLETS IN THE EVENING, DURATION : 35 DAYS
     Route: 065
     Dates: start: 20191106, end: 20191211
  2. QUETIAPINE FUMARATE [Suspect]
     Active Substance: QUETIAPINE FUMARATE
     Indication: Product used for unknown indication
     Dosage: 1 TABLET IN THE MORNING ,DURATION : 35 DAYS
     Route: 065
     Dates: start: 20191106, end: 20191211
  3. TEGRETOL [Suspect]
     Active Substance: CARBAMAZEPINE
     Indication: Product used for unknown indication
     Dosage: 600 MILLIGRAM DAILY; 200MG 3 TIMES A DAY, DURATION : 35 DAYS
     Route: 065
     Dates: start: 20191106, end: 20191211
  4. OXAZEPAM [Suspect]
     Active Substance: OXAZEPAM
     Indication: Product used for unknown indication
     Dosage: 25MG OR 50MG PER DAY, UNIT DOSE : 35 DAYS
     Route: 065
     Dates: start: 20191106, end: 20191211

REACTIONS (1)
  - Drug reaction with eosinophilia and systemic symptoms [Recovered/Resolved]

NARRATIVE: CASE EVENT DATE: 20191123
